FAERS Safety Report 23888932 (Version 1)
Quarter: 2024Q2

REPORT INFORMATION
  Report Type: Spontaneous
  Country: SG (occurrence: SG)
  Receive Date: 20240523
  Receipt Date: 20240523
  Transmission Date: 20240716
  Serious: Yes (Other)
  Sender: FDA-Public Use
  Company Number: SG-BAYER-2024A072650

PATIENT

DRUGS (2)
  1. EYLEA [Suspect]
     Active Substance: AFLIBERCEPT
     Indication: Polypoidal choroidal vasculopathy
     Dosage: INTERVAL IS AT Q4 (40 MG/ML)
     Dates: start: 20231213, end: 20240110
  2. SENSITIZERS USED IN PHOTODYNAMIC/RADIATION THERAPY [Concomitant]
     Indication: Polypoidal choroidal vasculopathy
     Dosage: 1 PDT

REACTIONS (1)
  - Polypoidal choroidal vasculopathy [Not Recovered/Not Resolved]
